FAERS Safety Report 6886338-7 (Version None)
Quarter: 2010Q3

REPORT INFORMATION
  Report Type: 
  Country: None (occurrence: None)
  Receive Date: 20100729
  Receipt Date: 20080604
  Transmission Date: 20110219
  Serious: No
  Sender: FDA-Public Use
  Company Number: US-PFIZER INC-2008048073

PATIENT
  Sex: Male
  Weight: 104.5 kg

DRUGS (3)
  1. CELEBREX [Suspect]
     Indication: SPINAL COLUMN INJURY
     Dates: start: 20080519
  2. IBUPROFEN TABLETS [Concomitant]
  3. ACETAMINOPHEN [Concomitant]

REACTIONS (1)
  - DRUG SCREEN POSITIVE [None]
